FAERS Safety Report 4668130-7 (Version None)
Quarter: 2005Q2

REPORT INFORMATION
  Report Type: 
  Country: None (occurrence: None)
  Receive Date: 20050521
  Receipt Date: 20050106
  Transmission Date: 20051028
  Serious: Yes (Other)
  Sender: FDA-Public Use
  Company Number: PHEH2005US00855

PATIENT
  Age: 64 Year
  Sex: Male

DRUGS (5)
  1. OXYCONTIN [Concomitant]
     Indication: PAIN
     Dosage: 20 MG, BID
     Route: 048
  2. PERCOCET [Concomitant]
     Indication: PAIN
     Dosage: UNK, PRN
     Route: 048
  3. DOCUSATE SODIUM [Concomitant]
     Dosage: 100 MG, QD
     Route: 048
  4. CITRACAL [Suspect]
     Route: 048
  5. ZOMETA [Suspect]
     Indication: MULTIPLE MYELOMA
     Dosage: 4 MG, QMO
     Dates: start: 20020516, end: 20041124

REACTIONS (11)
  - ACTINOMYCOSIS [None]
  - BONE MARROW DISORDER [None]
  - EXCESSIVE GRANULATION TISSUE [None]
  - HAEMORRHAGE [None]
  - JAW DISORDER [None]
  - LYMPHOCYTIC INFILTRATION [None]
  - OSTEONECROSIS [None]
  - OSTEOSCLEROSIS [None]
  - PRIMARY SEQUESTRUM [None]
  - TOOTH EXTRACTION [None]
  - TOOTH INFECTION [None]
